FAERS Safety Report 7545862-4 (Version None)
Quarter: 2011Q2

REPORT INFORMATION
  Report Type: 
  Country: None (occurrence: None)
  Receive Date: 20110524
  Receipt Date: 20110222
  Transmission Date: 20111010
  Serious: No
  Sender: FDA-Public Use
  Company Number: 028038

PATIENT
  Sex: Female
  Weight: 83.9 kg

DRUGS (10)
  1. VITAMIN D [Concomitant]
  2. AZATHIOPRINE [Concomitant]
  3. AMBIEN [Concomitant]
  4. CELEXA [Concomitant]
  5. CIMZIA [Suspect]
     Indication: CROHN'S DISEASE
     Dosage: (400 MG 1X/28 DAYS SUBCUTANEOUS) ; (400 MG 1X/28 DAYS SUBCUTANEOUS)
     Route: 058
     Dates: start: 20100701, end: 20100101
  6. CIMZIA [Suspect]
     Indication: CROHN'S DISEASE
     Dosage: (400 MG 1X/28 DAYS SUBCUTANEOUS) ; (400 MG 1X/28 DAYS SUBCUTANEOUS)
     Route: 058
     Dates: start: 20100801
  7. PRILOSEC [Concomitant]
  8. PHENERGAN /00033001/ [Concomitant]
  9. LOMOTIL /00034001/ [Concomitant]
  10. TRAMADOL HCL [Concomitant]

REACTIONS (2)
  - INJECTION SITE SWELLING [None]
  - VITAMIN D DEFICIENCY [None]
